FAERS Safety Report 12247424 (Version 3)
Quarter: 2016Q2

REPORT INFORMATION
  Report Type: Spontaneous
  Country: DK (occurrence: JP)
  Receive Date: 20160407
  Receipt Date: 20160608
  Transmission Date: 20160815
  Serious: Yes (Hospitalization)
  Sender: FDA-Public Use
  Company Number: JP-FRI-1000083766

PATIENT
  Age: 24 Year
  Sex: Female

DRUGS (13)
  1. RIVOTRIL [Suspect]
     Active Substance: CLONAZEPAM
     Indication: DEPRESSION
     Dosage: 0.3 GRAM
     Route: 048
  2. ABILIFY [Suspect]
     Active Substance: ARIPIPRAZOLE
     Dosage: .2 GRAM
     Route: 048
     Dates: end: 20160316
  3. RIVOTRIL [Suspect]
     Active Substance: CLONAZEPAM
     Dosage: 0.6 GRAM
     Route: 048
     Dates: end: 20160316
  4. AMOXAN [Suspect]
     Active Substance: AMOXAPINE
     Dosage: OVERDOSE 10 MG X 32 CAPSULES
     Route: 048
     Dates: end: 20160128
  5. AMOXAN [Suspect]
     Active Substance: AMOXAPINE
     Indication: DEPRESSION
     Dosage: 20 MG
     Route: 048
  6. AMOXAN [Suspect]
     Active Substance: AMOXAPINE
     Dosage: 20 MG
     Route: 048
     Dates: end: 20160316
  7. ABILIFY [Suspect]
     Active Substance: ARIPIPRAZOLE
     Indication: DEPRESSION
     Route: 048
  8. LENDORMIN [Concomitant]
     Active Substance: BROTIZOLAM
     Indication: INSOMNIA
     Dosage: 0.25 MG
     Route: 048
  9. ABILIFY [Suspect]
     Active Substance: ARIPIPRAZOLE
     Dosage: OVERDOSE: 0.1 GRAM X 31 PACKS
     Route: 048
     Dates: end: 20160128
  10. LEXAPRO [Suspect]
     Active Substance: ESCITALOPRAM OXALATE
     Indication: DEPRESSION
     Dosage: 10 MG
     Route: 048
     Dates: end: 20160128
  11. RIVOTRIL [Suspect]
     Active Substance: CLONAZEPAM
     Dosage: OVERDOSE: 0.3 GRAM X 31 PACKS
     Route: 048
     Dates: end: 20160128
  12. LEXAPRO [Suspect]
     Active Substance: ESCITALOPRAM OXALATE
     Dosage: OVERDOSE: 10 MGX20TABLETS
     Route: 048
     Dates: end: 20160128
  13. LEXAPRO [Suspect]
     Active Substance: ESCITALOPRAM OXALATE
     Dosage: 10 MG
     Route: 048
     Dates: end: 20160316

REACTIONS (2)
  - Overdose [Recovered/Resolved]
  - Altered state of consciousness [Recovered/Resolved]

NARRATIVE: CASE EVENT DATE: 20160128
